FAERS Safety Report 12777449 (Version 4)
Quarter: 2018Q3

REPORT INFORMATION
  Report Type: Spontaneous
  Country: US (occurrence: US)
  Receive Date: 20160924
  Receipt Date: 20180716
  Transmission Date: 20181010
  Serious: Yes (Hospitalization, Other)
  Sender: FDA-Public Use
  Company Number: US-TEVA-604606USA

PATIENT
  Age: 91 Year
  Sex: Male

DRUGS (16)
  1. BENICAR [Concomitant]
     Active Substance: OLMESARTAN MEDOXOMIL
     Indication: CARDIAC DISORDER
  2. VITAMIN B12 [Concomitant]
     Active Substance: CYANOCOBALAMIN
  3. CARBAMAZEPINE. [Suspect]
     Active Substance: CARBAMAZEPINE
     Dates: start: 20150729, end: 20150930
  4. K?TAB [Concomitant]
     Active Substance: POTASSIUM CHLORIDE
     Indication: CARDIAC DISORDER
  5. OLMESARTAN [Concomitant]
     Active Substance: OLMESARTAN
     Route: 065
  6. XTANDI [Suspect]
     Active Substance: ENZALUTAMIDE
     Indication: PROSTATE CANCER METASTATIC
     Dosage: 160 MILLIGRAM DAILY;
     Route: 048
     Dates: start: 20150330
  7. IRON [Concomitant]
     Active Substance: IRON
  8. AZELASTINE. [Concomitant]
     Active Substance: AZELASTINE HYDROCHLORIDE
  9. CARBAMAZEPINE. [Suspect]
     Active Substance: CARBAMAZEPINE
     Indication: PRODUCT USED FOR UNKNOWN INDICATION
     Dosage: USED ONE PILL
     Route: 065
     Dates: start: 20150729, end: 20150930
  10. FOLIC ACID. [Concomitant]
     Active Substance: FOLIC ACID
  11. B COMPLEX FOLIC ACID PLUS VITAMINE C [Concomitant]
  12. XTANDI [Suspect]
     Active Substance: ENZALUTAMIDE
     Indication: HORMONE-REFRACTORY PROSTATE CANCER
     Route: 065
     Dates: start: 20170105
  13. PANTOPRAZOLE [Concomitant]
     Active Substance: PANTOPRAZOLE
     Indication: ULCER
     Dosage: 1 HOUR BEFORE MEALS
  14. VITAMIN B COMPLEX [Concomitant]
     Active Substance: CYANOCOBALAMIN\DEXPANTHENOL\NIACINAMIDE\PYRIDOXINE HYDROCHLORIDE\RIBOFLAVIN 5^-PHOSPHATE SODIUM\THIAMINE HYDROCHLORIDE\VITAMIN B COMPLEX
  15. COZAPAN [Concomitant]
     Indication: TINNITUS
     Dates: start: 20140320
  16. CLINDAMYCIN. [Concomitant]
     Active Substance: CLINDAMYCIN
     Dosage: 300 MILLIGRAM DAILY; DENTIST EVERY 6 MONTHS

REACTIONS (11)
  - Anxiety [Not Recovered/Not Resolved]
  - Left ventricular failure [Recovering/Resolving]
  - Amnesia [Not Recovered/Not Resolved]
  - Weight decreased [Recovering/Resolving]
  - Cardiac arrest [Recovered/Resolved]
  - Neuropathy peripheral [Not Recovered/Not Resolved]
  - Dry mouth [Recovering/Resolving]
  - Prostatic specific antigen increased [Unknown]
  - Tinnitus [Recovered/Resolved]
  - Insomnia [Unknown]
  - Vertigo positional [Recovered/Resolved]

NARRATIVE: CASE EVENT DATE: 20150302
